FAERS Safety Report 6587602-1 (Version None)
Quarter: 2010Q1

REPORT INFORMATION
  Report Type: 
  Country: None (occurrence: None)
  Receive Date: 20100218
  Receipt Date: 20100215
  Transmission Date: 20100710
  Serious: Yes (Hospitalization)
  Sender: FDA-Public Use
  Company Number: FR-WYE-G05572810

PATIENT
  Sex: Female

DRUGS (5)
  1. IBUPROFEN (ADVIL) [Suspect]
     Dosage: 1 DF 1 TIME PER DAY
     Route: 048
     Dates: start: 20091207, end: 20100107
  2. DI-ANTALVIC [Concomitant]
  3. PREVISCAN [Suspect]
     Route: 048
     Dates: end: 20100106
  4. LOXEN [Concomitant]
  5. MEDIATOR [Concomitant]

REACTIONS (5)
  - ANAEMIA [None]
  - INTERNATIONAL NORMALISED RATIO INCREASED [None]
  - MELAENA [None]
  - MUCOSAL EROSION [None]
  - SUBCUTANEOUS HAEMATOMA [None]
